FAERS Safety Report 7141795-6 (Version None)
Quarter: 2010Q4

REPORT INFORMATION
  Report Type: 
  Country: None (occurrence: None)
  Receive Date: 20101207
  Receipt Date: 20101117
  Transmission Date: 20110411
  Serious: Yes (Hospitalization)
  Sender: FDA-Public Use
  Company Number: US-ROCHE-692179

PATIENT
  Sex: Male
  Weight: 52 kg

DRUGS (5)
  1. TOCILIZUMAB [Suspect]
     Indication: RHEUMATOID ARTHRITIS
     Dosage: FORM: INFUSION,LAST DOSE PRIOR TO SAE: 12 DECEMBER 2009. TEMPORARILY INTERRUPTED
     Route: 042
     Dates: start: 20091212
  2. TOCILIZUMAB [Suspect]
     Dosage: FREQUENCY: 84 WEEKS
     Route: 042
  3. FOLIC ACID [Concomitant]
     Dates: start: 20090604
  4. VITAMIN D [Concomitant]
     Dates: start: 20090707
  5. LASIX [Concomitant]
     Dates: start: 20090924, end: 20091024

REACTIONS (1)
  - CARDIAC FAILURE CONGESTIVE [None]
